FAERS Safety Report 12677919 (Version 1)
Quarter: 2016Q3

REPORT INFORMATION
  Report Type: Spontaneous
  Country: US (occurrence: US)
  Receive Date: 20160823
  Receipt Date: 20160823
  Transmission Date: 20161109
  Serious: No
  Sender: FDA-Public Use
  Company Number: US-TARO-2015TAR00711

PATIENT
  Sex: Male
  Weight: 87.98 kg

DRUGS (11)
  1. WARFARIN SODIUM TABLETS USP 10MG [Suspect]
     Active Substance: WARFARIN SODIUM
     Dosage: 10 MG, 1X/DAY
     Dates: start: 20150727
  2. WARFARIN SODIUM TABLETS USP 10MG [Suspect]
     Active Substance: WARFARIN SODIUM
     Dosage: 10 MG, 6X/WEEK
     Route: 048
     Dates: start: 201506, end: 20150727
  3. METOPROLOL TARTRATE. [Concomitant]
     Active Substance: METOPROLOL TARTRATE
     Dosage: 25 MG, 1X/DAY
     Dates: start: 201507
  4. BABY ASPIRIN [Concomitant]
     Active Substance: ASPIRIN
     Dosage: 1 DOSAGE UNITS, 1X/DAY
  5. METOPROLOL TARTRATE. [Concomitant]
     Active Substance: METOPROLOL TARTRATE
     Dosage: 25 MG, 2X/DAY
     Dates: start: 2003, end: 201507
  6. LISINOPRIL/HCTZ 20/12.5 [Concomitant]
     Dosage: 0.5 DOSAGE UNITS, 1X/DAY
     Dates: start: 2003
  7. PRIMIDONE. [Concomitant]
     Active Substance: PRIMIDONE
     Dosage: 250 MG, 3X/DAY
     Dates: start: 201504
  8. FLUOXETINE [Suspect]
     Active Substance: FLUOXETINE HYDROCHLORIDE
     Indication: FEELING ABNORMAL
     Dosage: 20 MG, 3X/DAY
  9. WARFARIN SODIUM TABLETS USP 10MG [Suspect]
     Active Substance: WARFARIN SODIUM
     Indication: PULMONARY EMBOLISM
     Dosage: 5 MG, 1X/WEEK
     Route: 048
     Dates: start: 201506, end: 20150726
  10. FINASTERIDE. [Concomitant]
     Active Substance: FINASTERIDE
     Dosage: 0.5 MG, 1X/DAY
     Dates: start: 2012
  11. OMEPRAZOLE. [Concomitant]
     Active Substance: OMEPRAZOLE
     Dosage: 40 MG, 1X/DAY

REACTIONS (3)
  - Constipation [Recovered/Resolved]
  - Dry mouth [Not Recovered/Not Resolved]
  - Blood pressure decreased [Not Recovered/Not Resolved]

NARRATIVE: CASE EVENT DATE: 2015
